FAERS Safety Report 17548191 (Version 1)
Quarter: 2020Q1

REPORT INFORMATION
  Report Type: Spontaneous
  Country: US (occurrence: US)
  Receive Date: 20200317
  Receipt Date: 20200317
  Transmission Date: 20200409
  Serious: Yes (Hospitalization)
  Sender: FDA-Public Use
  Company Number: US-TEVA-2020-US-1204069

PATIENT
  Age: 47 Year
  Sex: Male

DRUGS (6)
  1. VASOPRESSIN. [Suspect]
     Active Substance: VASOPRESSIN
     Indication: HYPOTENSION
     Dosage: INITIAL DOSAGE NOT STATED
     Route: 065
  2. EPINEPHRINE. [Suspect]
     Active Substance: EPINEPHRINE
     Indication: HYPOTENSION
     Dosage: INITIAL DOSAGE NOT STATED
     Route: 065
  3. EPINEPHRINE. [Suspect]
     Active Substance: EPINEPHRINE
     Dosage: UP-TITRATED TO 0.5 MG/KG/MIN.
     Route: 065
  4. NOREPINEPHRINE. [Suspect]
     Active Substance: NOREPINEPHRINE
     Dosage: UP-TITRATED TO 1.5 MG/KG/MIN.
     Route: 065
  5. NOREPINEPHRINE. [Suspect]
     Active Substance: NOREPINEPHRINE
     Indication: HYPOTENSION
     Dosage: INITIAL DOSAGE NOT STATED
     Route: 065
  6. VASOPRESSIN. [Suspect]
     Active Substance: VASOPRESSIN
     Dosage: UP-TITRATED TO 0.04 U/MIN
     Route: 065

REACTIONS (1)
  - Arteriospasm coronary [Recovered/Resolved]
